FAERS Safety Report 5221773-4 (Version None)
Quarter: 2007Q1

REPORT INFORMATION
  Report Type: 
  Country: None (occurrence: None)
  Receive Date: 20070125
  Receipt Date: 20070125
  Transmission Date: 20070707
  Serious: Yes (Hospitalization)
  Sender: FDA-Public Use
  Company Number: None

PATIENT
  Sex: Male

DRUGS (1)
  1. HABITROL [Suspect]
     Dosage: 21MG DAILY CUTANEOUS
     Route: 003
     Dates: start: 20061228, end: 20061228

REACTIONS (4)
  - BACK PAIN [None]
  - BLOOD URINE PRESENT [None]
  - DYSARTHRIA [None]
  - HEADACHE [None]
